FAERS Safety Report 4457438-6 (Version None)
Quarter: 2004Q3

REPORT INFORMATION
  Report Type: 
  Country: None (occurrence: None)
  Receive Date: 20040922
  Receipt Date: 20040903
  Transmission Date: 20050211
  Serious: Yes (Hospitalization, Other)
  Sender: FDA-Public Use
  Company Number: USA040874274

PATIENT
  Age: 81 Year
  Sex: Female

DRUGS (1)
  1. FORTEO [Suspect]
     Indication: OSTEOPOROSIS
     Dates: start: 20040601

REACTIONS (5)
  - BACK PAIN [None]
  - CONDITION AGGRAVATED [None]
  - DISEASE RECURRENCE [None]
  - DIVERTICULUM [None]
  - RECTAL HAEMORRHAGE [None]
